FAERS Safety Report 5092166-8 (Version None)
Quarter: 2006Q3

REPORT INFORMATION
  Report Type: 
  Country: None (occurrence: None)
  Receive Date: 20060824
  Receipt Date: 20060810
  Transmission Date: 20061208
  Serious: Yes (Other)
  Sender: FDA-Public Use
  Company Number: 8013431

PATIENT
  Sex: Male
  Weight: 7.4 kg

DRUGS (2)
  1. KEPPRA [Suspect]
     Dosage: VIA
     Dates: end: 20050712
  2. LEXAPRO [Suspect]
     Dosage: VIA
     Dates: end: 20050712

REACTIONS (4)
  - CAESAREAN SECTION [None]
  - DRUG EXPOSURE DURING PREGNANCY [None]
  - PLACENTA PRAEVIA [None]
  - PREMATURE BABY [None]
